FAERS Safety Report 4415210-7 (Version None)
Quarter: 2004Q3

REPORT INFORMATION
  Report Type: 
  Country: None (occurrence: None)
  Receive Date: 20040729
  Receipt Date: 20040717
  Transmission Date: 20050211
  Serious: Yes (Other)
  Sender: FDA-Public Use
  Company Number: 2004042204

PATIENT
  Age: 57 Year
  Sex: Male

DRUGS (11)
  1. LIPITOR [Suspect]
     Indication: ILL-DEFINED DISORDER
     Dosage: 10 MG (10 MG, 1 IN 1 D), ORAL
     Route: 048
  2. LEVOFLOXACIN [Suspect]
     Indication: LOCALISED INFECTION
     Dosage: 250 MG (250 MG, 1 IN 1 D), ORAL
     Route: 048
     Dates: start: 20040608
  3. CLINDAMYCIN HCL [Suspect]
     Indication: LOCALISED INFECTION
     Dosage: 1200 MG (300 MG, 4 IN 1 D)
     Dates: start: 20040608
  4. CALCITRIOL [Concomitant]
  5. QUININE SULFATE (QUININE SULFATE) [Concomitant]
  6. OMEPRAZOLE [Concomitant]
  7. LISINOPRIL [Concomitant]
  8. DAILY VITAMINS (VITAMINS NOS) [Concomitant]
  9. MAGNESIUM (MAGNESIUM) [Concomitant]
  10. CELECOXIB (CELECOXIB) [Concomitant]
  11. CALCIUM ACETATE (CALCIUM ACETATE) [Concomitant]

REACTIONS (3)
  - DIALYSIS [None]
  - MUSCULAR WEAKNESS [None]
  - RENAL DISORDER [None]
